FAERS Safety Report 17592904 (Version 1)
Quarter: 2020Q1

REPORT INFORMATION
  Report Type: Spontaneous
  Country: US (occurrence: US)
  Receive Date: 20200327
  Receipt Date: 20200327
  Transmission Date: 20200409
  Serious: No
  Sender: FDA-Public Use
  Company Number: US-AMNEAL PHARMACEUTICALS-2019-IPXL-00554

PATIENT
  Age: 58 Year
  Sex: Female
  Weight: 49 kg

DRUGS (3)
  1. CALCIUM [Concomitant]
     Active Substance: CALCIUM
     Indication: OSTEOPOROSIS
     Dosage: 334 MILLIGRAM, QD, OVER THE COUNTER
     Route: 048
     Dates: start: 2018
  2. ALENDRONATE SODIUM IR [Suspect]
     Active Substance: ALENDRONATE SODIUM
     Indication: OSTEOPOROSIS
     Dosage: 70 MILLIGRAM, 1 /WEEK, EVERY MONDAY
     Route: 048
     Dates: start: 201810
  3. IRON [Concomitant]
     Active Substance: IRON
     Indication: PRODUCT USED FOR UNKNOWN INDICATION
     Dosage: 65 MILLIGRAM, QD
     Route: 048
     Dates: start: 201901

REACTIONS (3)
  - Feeling abnormal [Recovered/Resolved]
  - Dysphagia [Not Recovered/Not Resolved]
  - Anxiety [Recovered/Resolved]

NARRATIVE: CASE EVENT DATE: 2018
